FAERS Safety Report 4571260-1 (Version None)
Quarter: 2005Q1

REPORT INFORMATION
  Report Type: 
  Country: None (occurrence: None)
  Receive Date: 20050202
  Receipt Date: 20050120
  Transmission Date: 20050727
  Serious: Yes (Hospitalization)
  Sender: FDA-Public Use
  Company Number: 141227USA

PATIENT
  Age: 59 Year
  Sex: Male

DRUGS (4)
  1. ADRUCIL [Suspect]
     Indication: COLON CANCER STAGE III
     Dates: start: 20041228, end: 20041229
  2. CETUXIMAB [Suspect]
     Indication: COLON CANCER STAGE III
     Dates: start: 20041025, end: 20041025
  3. LEUCOVORIN CALCIUM [Suspect]
     Indication: COLON CANCER STAGE III
     Dates: start: 20041228, end: 20041228
  4. OXALIPLATIN [Suspect]
     Indication: COLON CANCER STAGE III
     Dates: start: 20041228, end: 20041228

REACTIONS (5)
  - ACNE [None]
  - CEREBRAL ISCHAEMIA [None]
  - CEREBROVASCULAR ACCIDENT [None]
  - HEADACHE [None]
  - VISION BLURRED [None]
